FAERS Safety Report 8539360-9 (Version None)
Quarter: 2012Q3

REPORT INFORMATION
  Report Type: 
  Country: None (occurrence: None)
  Receive Date: 20120726
  Receipt Date: 20110720
  Transmission Date: 20120928
  Serious: No
  Sender: FDA-Public Use
  Company Number: US-ASTRAZENECA-2011SE43631

PATIENT
  Age: 47 Year
  Sex: Female
  Weight: 76.2 kg

DRUGS (3)
  1. SEROQUEL [Suspect]
     Indication: DEPRESSION
     Route: 048
     Dates: start: 20100701
  2. CELEXA [Concomitant]
  3. ALBUTEROL [Concomitant]

REACTIONS (4)
  - DYSPNOEA [None]
  - WEIGHT INCREASED [None]
  - ANGINA PECTORIS [None]
  - CHEST DISCOMFORT [None]
